FAERS Safety Report 26129352 (Version 1)
Quarter: 2025Q4

REPORT INFORMATION
  Report Type: Spontaneous
  Country: US (occurrence: US)
  Receive Date: 20251208
  Receipt Date: 20251208
  Transmission Date: 20260118
  Serious: Yes (Other)
  Sender: ABBVIE
  Company Number: US-ABBVIE-6575542

PATIENT
  Sex: Female

DRUGS (1)
  1. REFRESH TEARS [Suspect]
     Active Substance: CARBOXYMETHYLCELLULOSE SODIUM
     Indication: Eye lubrication therapy
     Dosage: 10ML
     Route: 047

REACTIONS (2)
  - Macular degeneration [Unknown]
  - Product container issue [Not Recovered/Not Resolved]
